FAERS Safety Report 9854644 (Version 2)
Quarter: 2014Q1

REPORT INFORMATION
  Report Type: Spontaneous
  Country: US (occurrence: US)
  Receive Date: 20140130
  Receipt Date: 20140224
  Transmission Date: 20141002
  Serious: No
  Sender: FDA-Public Use
  Company Number: US-BIOGENIDEC-2014BI008056

PATIENT
  Age: 64 Year
  Sex: Female

DRUGS (13)
  1. TECFIDERA [Suspect]
     Indication: MULTIPLE SCLEROSIS
     Dates: start: 20130705
  2. TECFIDERA [Suspect]
     Indication: MULTIPLE SCLEROSIS
     Route: 048
  3. LORAZEPAM [Concomitant]
     Route: 048
  4. BACLOFEN [Concomitant]
     Route: 048
  5. VITAMIN C [Concomitant]
     Route: 048
  6. SAVELLA [Concomitant]
     Route: 048
  7. ADVIL [Concomitant]
     Route: 048
  8. FISH OIL [Concomitant]
     Route: 048
  9. VITAMIN D [Concomitant]
     Route: 048
  10. CALCIUM [Concomitant]
     Route: 048
  11. PROBIOTIC [Concomitant]
     Route: 048
  12. BABY ASPIRIN [Concomitant]
     Route: 048
  13. TIZANIDINE [Concomitant]
     Route: 048

REACTIONS (2)
  - Fatigue [Not Recovered/Not Resolved]
  - Intentional drug misuse [Unknown]
